FAERS Safety Report 4545806-3 (Version None)
Quarter: 2005Q1

REPORT INFORMATION
  Report Type: 
  Country: None (occurrence: None)
  Receive Date: 20050103
  Receipt Date: 20041214
  Transmission Date: 20050727
  Serious: Yes (Other)
  Sender: FDA-Public Use
  Company Number: USA041286271

PATIENT
  Age: 50 Year
  Sex: Male

DRUGS (1)
  1. ZYPREXA [Suspect]
     Dosage: 20 MG

REACTIONS (3)
  - BLOOD GLUCOSE INCREASED [None]
  - CIRCULATORY COLLAPSE [None]
  - METABOLIC SYNDROME [None]
